FAERS Safety Report 7293114-2 (Version None)
Quarter: 2011Q1

REPORT INFORMATION
  Report Type: 
  Country: None (occurrence: None)
  Receive Date: 20110210
  Receipt Date: 20110210
  Transmission Date: 20110831
  Serious: No
  Sender: FDA-Public Use
  Company Number: None

PATIENT
  Sex: Male
  Weight: 56.8 kg

DRUGS (3)
  1. ZYVOX [Suspect]
     Indication: PNEUMONIA
     Dosage: 600MG Q12H IV
     Route: 042
     Dates: start: 20110114, end: 20110118
  2. DORIPENEM 500MG JANSSEN PHARMACEUTICALS [Suspect]
     Indication: PNEUMONIA
     Dosage: 500MG Q8H IV
     Route: 042
     Dates: start: 20110114, end: 20110118
  3. NS [Concomitant]

REACTIONS (3)
  - PRURITUS [None]
  - EYE IRRITATION [None]
  - VISION BLURRED [None]
